FAERS Safety Report 7705522-3 (Version None)
Quarter: 2011Q3

REPORT INFORMATION
  Report Type: 
  Country: None (occurrence: None)
  Receive Date: 20110823
  Receipt Date: 20110823
  Transmission Date: 20111222
  Serious: Yes (Other)
  Sender: FDA-Public Use
  Company Number: None

PATIENT
  Sex: Female

DRUGS (2)
  1. BUPROPRION HCL [Suspect]
     Indication: OBSESSIVE-COMPULSIVE DISORDER
     Dosage: 150 MG XL QD 047 (ORAL)
     Route: 048
     Dates: start: 20100101, end: 20110101
  2. BUPROPRION HCL [Suspect]
     Indication: DYSTHYMIC DISORDER
     Dosage: 150 MG XL QD 047 (ORAL)
     Route: 048
     Dates: start: 20100101, end: 20110101

REACTIONS (3)
  - DEPRESSED MOOD [None]
  - PRODUCT SUBSTITUTION ISSUE [None]
  - FATIGUE [None]
